FAERS Safety Report 5899559-7 (Version None)
Quarter: 2008Q3

REPORT INFORMATION
  Report Type: 
  Country: None (occurrence: None)
  Receive Date: 20080926
  Receipt Date: 20080918
  Transmission Date: 20090109
  Serious: Yes (Other)
  Sender: FDA-Public Use
  Company Number: PHBS2008BE05762

PATIENT
  Age: 31 Year
  Sex: Male

DRUGS (5)
  1. TERBINAFINE HCL [Suspect]
     Indication: DERMATOPHYTOSIS
     Dosage: 250 MG/ DAY
  2. TERBINAFINE HCL [Suspect]
     Dosage: 250 MG /DAY
  3. ITRACONAZOLE [Suspect]
     Indication: FUNGAL INFECTION
     Dosage: 200 MG BID/ONE WK PER MONTH
  4. VORICONAZOLE [Suspect]
     Indication: DERMATOPHYTOSIS
     Dosage: 600 MG/DAY
  5. POSACONAZOLE [Suspect]
     Indication: FUNGAL INFECTION
     Dosage: 400 MG, BID

REACTIONS (6)
  - DISEASE PROGRESSION [None]
  - DRUG INEFFECTIVE [None]
  - HEPATITIS TOXIC [None]
  - MULTIPLE-DRUG RESISTANCE [None]
  - SKIN NODULE [None]
  - TRICHOPHYTIC GRANULOMA [None]
